FAERS Safety Report 14381749 (Version 1)
Quarter: 2018Q1

REPORT INFORMATION
  Report Type: Report from Study
  Country: US (occurrence: US)
  Receive Date: 20180112
  Receipt Date: 20180112
  Transmission Date: 20180509
  Serious: Yes (Hospitalization, Other)
  Sender: FDA-Public Use
  Company Number: US-VIFOR (INTERNATIONAL) INC.-VIT-2017-11858

PATIENT
  Sex: Male
  Weight: 63.56 kg

DRUGS (9)
  1. HYDRALAZINE [Concomitant]
     Active Substance: HYDRALAZINE HYDROCHLORIDE
  2. AMLODIPINE BESILATE [Concomitant]
     Active Substance: AMLODIPINE BESYLATE
  3. FOSRENOL [Concomitant]
     Active Substance: LANTHANUM CARBONATE
  4. SENSIPAR [Concomitant]
     Active Substance: CINACALCET HYDROCHLORIDE
  5. LOSARTAN POTASSIUM. [Concomitant]
     Active Substance: LOSARTAN POTASSIUM
  6. VELTASSA [Suspect]
     Active Substance: PATIROMER
     Indication: BLOOD POTASSIUM INCREASED
     Route: 048
     Dates: start: 201704, end: 2017
  7. CARVEDILOL. [Concomitant]
     Active Substance: CARVEDILOL
  8. FOLIC ACID. [Concomitant]
     Active Substance: FOLIC ACID
  9. CODEINE PHOSPHATE~~PARACETAMOL [Concomitant]

REACTIONS (13)
  - Infection [Recovered/Resolved]
  - Calcium deficiency [Not Recovered/Not Resolved]
  - Dizziness [Unknown]
  - Weight decreased [Not Recovered/Not Resolved]
  - Pulmonary oedema [Recovered/Resolved]
  - Condition aggravated [Not Recovered/Not Resolved]
  - Product physical issue [Unknown]
  - Nerve compression [Unknown]
  - Product taste abnormal [Unknown]
  - Fracture [Not Recovered/Not Resolved]
  - Thyroid cancer [Not Recovered/Not Resolved]
  - Adverse event [Unknown]
  - Choking [Unknown]

NARRATIVE: CASE EVENT DATE: 2017
